FAERS Safety Report 9478313 (Version 5)
Quarter: 2015Q2

REPORT INFORMATION
  Report Type: Spontaneous
  Country: US (occurrence: US)
  Receive Date: 20130827
  Receipt Date: 20150626
  Transmission Date: 20150821
  Serious: Yes (Hospitalization, Other)
  Sender: FDA-Public Use
  Company Number: US-009507513-1308USA009598

PATIENT
  Sex: Female
  Weight: 66.67 kg

DRUGS (4)
  1. FOSAMAX [Suspect]
     Active Substance: ALENDRONATE SODIUM
     Dosage: 70 MG, UNK
     Route: 048
     Dates: start: 20050927, end: 20081118
  2. ALENDRONATE SODIUM. [Suspect]
     Active Substance: ALENDRONATE SODIUM
     Indication: OSTEOPOROSIS
     Dosage: 10 MG, UNK
     Route: 048
  3. FOSAMAX [Suspect]
     Active Substance: ALENDRONATE SODIUM
     Indication: OSTEOPOROSIS
     Dosage: 10 MG, QD
     Route: 048
     Dates: start: 20010531, end: 20050927
  4. ALENDRONATE SODIUM. [Suspect]
     Active Substance: ALENDRONATE SODIUM
     Dosage: 70 MG, QW
     Route: 048
     Dates: start: 20080520, end: 20110809

REACTIONS (29)
  - Hip arthroplasty [Unknown]
  - Femur fracture [Recovering/Resolving]
  - Calcium deficiency [Unknown]
  - Hypothyroidism [Unknown]
  - Gastrooesophageal reflux disease [Unknown]
  - Low turnover osteopathy [Unknown]
  - Knee arthroplasty [Unknown]
  - Deafness neurosensory [Unknown]
  - Dyspnoea [Unknown]
  - Knee arthroplasty [Unknown]
  - Hypertension [Unknown]
  - Bone disorder [Unknown]
  - Arthritis [Unknown]
  - Cough [Unknown]
  - Stapedectomy [Unknown]
  - Dysuria [Unknown]
  - Breast cyst excision [Unknown]
  - Intramedullary rod insertion [Unknown]
  - Cerebral infarction [Unknown]
  - Acquired mixed hyperlipidaemia [Unknown]
  - Osteoarthritis [Unknown]
  - Fatigue [Unknown]
  - Cerebral artery thrombosis [Unknown]
  - Vitamin D deficiency [Unknown]
  - Inappropriate schedule of drug administration [Unknown]
  - Blood pressure decreased [Recovered/Resolved]
  - Memory impairment [Unknown]
  - Urine output decreased [Recovered/Resolved]
  - Arthralgia [Unknown]

NARRATIVE: CASE EVENT DATE: 2005
